FAERS Safety Report 6438740-5 (Version None)
Quarter: 2009Q4

REPORT INFORMATION
  Report Type: 
  Country: None (occurrence: None)
  Receive Date: 20091113
  Receipt Date: 20091104
  Transmission Date: 20100525
  Serious: Yes (Death)
  Sender: FDA-Public Use
  Company Number: US-JNJFOC-20091102367

PATIENT
  Sex: Male

DRUGS (15)
  1. REMICADE [Suspect]
     Route: 042
     Dates: start: 20060101, end: 20090417
  2. REMICADE [Suspect]
     Indication: RHEUMATOID ARTHRITIS
     Route: 042
     Dates: start: 20060101, end: 20090417
  3. PREDNISONE [Concomitant]
     Indication: PAIN
  4. PREDNISONE [Concomitant]
     Indication: LUNG DISORDER
     Dosage: 1 TO 2 TIMES/DAY
  5. ALLOPURINOL [Concomitant]
     Indication: GOUT
  6. WARFARIN SODIUM [Concomitant]
     Indication: CARDIAC DISORDER
     Dosage: 14 YEARS
  7. MEXILETINE HYDROCHLORIDE [Concomitant]
     Indication: CARDIAC DISORDER
     Dosage: 3 YEARS
  8. SPIRONOLACTONE [Concomitant]
  9. CARVEDILOL [Concomitant]
     Indication: CARDIAC DISORDER
  10. METHOTREXATE [Concomitant]
     Indication: RHEUMATOID ARTHRITIS
     Dosage: 6X ON SATURDAY
  11. FOLIC ACID [Concomitant]
     Indication: RHEUMATOID ARTHRITIS
  12. FLOMAX [Concomitant]
     Indication: PROSTATOMEGALY
     Dosage: 3 YEARS
  13. CALCIUM AND VITAMIN D [Concomitant]
     Dosage: 2 YEARS
  14. OXYCODONE HCL AND ACETAMINOPHEN [Concomitant]
     Indication: PAIN
     Dosage: 5/325MG/6 HOURS AS NEEDED
  15. FISH OIL [Concomitant]
     Indication: BLOOD CHOLESTEROL

REACTIONS (3)
  - CARDIOMYOPATHY [None]
  - PNEUMONIA [None]
  - SEPSIS [None]
